FAERS Safety Report 8137770-5 (Version None)
Quarter: 2012Q1

REPORT INFORMATION
  Report Type: 
  Country: None (occurrence: None)
  Receive Date: 20120215
  Receipt Date: 20120202
  Transmission Date: 20120608
  Serious: Yes (Other)
  Sender: FDA-Public Use
  Company Number: JP-UCBSA-051057

PATIENT
  Age: 8 Year
  Sex: Male

DRUGS (8)
  1. KEPPRA [Suspect]
     Route: 048
     Dates: start: 20110101, end: 20120110
  2. DEPAKENE [Suspect]
     Route: 048
  3. CLONAZEPAM [Suspect]
  4. KEPPRA [Suspect]
     Indication: EPILEPSY
     Route: 048
     Dates: start: 20120120, end: 20120127
  5. TOPIRAMATE [Suspect]
     Route: 048
  6. KEPPRA [Suspect]
     Route: 048
     Dates: start: 20120110, end: 20120120
  7. PHENOBARBITAL TAB [Suspect]
  8. GABAPENTIN [Suspect]
     Route: 048

REACTIONS (3)
  - WHITE BLOOD CELL COUNT DECREASED [None]
  - PYREXIA [None]
  - C-REACTIVE PROTEIN INCREASED [None]
